FAERS Safety Report 7234770-4 (Version None)
Quarter: 2010Q4

REPORT INFORMATION
  Report Type: 
  Country: None (occurrence: None)
  Receive Date: 20101130
  Receipt Date: 20100413
  Transmission Date: 20110411
  Serious: Yes (Life-Threatening, Hospitalization, Other)
  Sender: FDA-Public Use
  Company Number: 2010SP021372

PATIENT
  Sex: Female

DRUGS (5)
  1. NUVARING [Suspect]
     Indication: PRODUCT USED FOR UNKNOWN INDICATION
     Dosage: 1 DF;VAG
     Route: 067
     Dates: start: 20060401, end: 20080701
  2. VICODIN [Concomitant]
  3. SINGULAIR [Concomitant]
  4. ADVAIR [Concomitant]
  5. IBUPROFEN [Concomitant]

REACTIONS (2)
  - HAEMORRHAGE INTRACRANIAL [None]
  - SUPERIOR SAGITTAL SINUS THROMBOSIS [None]
